FAERS Safety Report 13107495 (Version 3)
Quarter: 2017Q2

REPORT INFORMATION
  Report Type: Spontaneous
  Country: US (occurrence: US)
  Receive Date: 20170112
  Receipt Date: 20170505
  Transmission Date: 20170830
  Serious: Yes (Hospitalization, Other)
  Sender: FDA-Public Use
  Company Number: PHEH2017US000934

PATIENT
  Age: 25 Year
  Sex: Female

DRUGS (3)
  1. GILENYA [Suspect]
     Active Substance: FINGOLIMOD HYDROCHLORIDE
     Indication: MULTIPLE SCLEROSIS
     Dosage: 0.5 MG, QD
     Route: 048
     Dates: start: 20161006
  2. BENZACLIN [Concomitant]
     Active Substance: BENZOYL PEROXIDE\CLINDAMYCIN PHOSPHATE
     Indication: ACNE
     Dosage: 1 DF, BID
     Route: 065
  3. VITAMIN D3 [Concomitant]
     Active Substance: CHOLECALCIFEROL
     Indication: PRODUCT USED FOR UNKNOWN INDICATION
     Dosage: 1000 U, QD
     Route: 065

REACTIONS (7)
  - Fatigue [Unknown]
  - Sinus rhythm [Unknown]
  - Heart rate decreased [Unknown]
  - Atrioventricular block second degree [Unknown]
  - Sinus bradycardia [Unknown]
  - Chest pain [Unknown]
  - Sinus arrhythmia [Unknown]

NARRATIVE: CASE EVENT DATE: 20161006
